FAERS Safety Report 9602064 (Version 2)
Quarter: 2013Q4

REPORT INFORMATION
  Report Type: Spontaneous
  Country: US (occurrence: US)
  Receive Date: 20131007
  Receipt Date: 20131105
  Transmission Date: 20140711
  Serious: Yes (Other)
  Sender: FDA-Public Use
  Company Number: US-SA-2013SA095237

PATIENT
  Age: 53 Year
  Sex: Male
  Weight: 113.39 kg

DRUGS (13)
  1. LANTUS SOLOSTAR [Suspect]
     Indication: TYPE 1 DIABETES MELLITUS
     Dosage: DOSE:30 UNIT(S)
     Route: 058
     Dates: start: 20020602, end: 20131025
  2. SOLOSTAR [Concomitant]
  3. NOVOLOG [Concomitant]
     Indication: DIABETES MELLITUS
     Dosage: FREQUENCY - BEFORE MEALS DOSE:30 UNIT(S)
     Route: 065
  4. CATAPRES-TTS [Concomitant]
     Indication: HYPERTENSION
     Dosage: PATCH ON ARM
     Route: 065
     Dates: start: 200610
  5. NIASPAN [Concomitant]
     Indication: HYPERTENSION
     Route: 065
     Dates: start: 201001
  6. GEMFIBROZIL [Concomitant]
     Indication: BLOOD CHOLESTEROL
     Route: 065
     Dates: start: 200201
  7. METOPROLOL [Concomitant]
     Indication: BLOOD CHOLESTEROL
     Route: 065
     Dates: start: 200606
  8. LISINOPRIL [Concomitant]
     Indication: BLOOD PRESSURE
     Route: 065
     Dates: start: 200809
  9. HYDROCHLOROTHIAZIDE [Concomitant]
     Indication: RENAL DISORDER
     Route: 065
     Dates: start: 199910
  10. PILOCARPINE [Concomitant]
     Indication: GLAUCOMA
     Dosage: 1 DROP EACH EYE
     Route: 065
     Dates: start: 200801
  11. XALATAN [Concomitant]
     Indication: INTRAOCULAR PRESSURE TEST
     Dosage: 1 DROP EACH EYE
     Route: 065
     Dates: start: 200801
  12. ALPHAGAN [Concomitant]
     Indication: GLAUCOMA
     Dosage: 1 DROP EACH EYE
     Route: 065
     Dates: start: 200801
  13. SYMLIN [Concomitant]

REACTIONS (3)
  - Renal disorder [Unknown]
  - Blindness [Unknown]
  - Weight increased [Not Recovered/Not Resolved]
